FAERS Safety Report 5268866-3 (Version None)
Quarter: 2007Q1

REPORT INFORMATION
  Report Type: 
  Country: None (occurrence: None)
  Receive Date: 20070313
  Receipt Date: 20070227
  Transmission Date: 20070707
  Serious: Yes (Life-Threatening, Hospitalization)
  Sender: FDA-Public Use
  Company Number: GXKR2007GB02093

PATIENT
  Sex: Male

DRUGS (2)
  1. MIRTAZAPINE [Suspect]
     Indication: DEPRESSION
     Dosage: 60 MG, UNK, ORAL
     Route: 048
     Dates: start: 20060901
  2. QUETIAPINE FUMARATE [Concomitant]

REACTIONS (1)
  - CEREBROVASCULAR ACCIDENT [None]
